FAERS Safety Report 10092711 (Version 1)
Quarter: 2014Q2

REPORT INFORMATION
  Report Type: Spontaneous
  Country: US (occurrence: US)
  Receive Date: 20140421
  Receipt Date: 20140421
  Transmission Date: 20141212
  Serious: No
  Sender: FDA-Public Use
  Company Number: US-SANOFI-AVENTIS-2013SA064068

PATIENT
  Age: 82 Year
  Sex: Female

DRUGS (1)
  1. ALLEGRA [Suspect]
     Route: 048
     Dates: start: 20130604, end: 20130612

REACTIONS (5)
  - Flatulence [Unknown]
  - Constipation [Unknown]
  - Dry mouth [Unknown]
  - Headache [Unknown]
  - Back pain [Unknown]
